FAERS Safety Report 6297277-7 (Version None)
Quarter: 2009Q3

REPORT INFORMATION
  Report Type: 
  Country: None (occurrence: None)
  Receive Date: 20090804
  Receipt Date: 20090804
  Transmission Date: 20100115
  Serious: Yes (Disabling)
  Sender: FDA-Public Use
  Company Number: None

PATIENT
  Sex: Male
  Weight: 102.0593 kg

DRUGS (1)
  1. ZICAM COLD REMEDY NASAL GEL NO DRIP [Suspect]
     Indication: MALAISE
     Dosage: NASAL SPRAY 1
     Route: 045
     Dates: start: 20090210

REACTIONS (4)
  - ANOSMIA [None]
  - CRYING [None]
  - HYPOSMIA [None]
  - NASAL DISCOMFORT [None]
